FAERS Safety Report 21469697 (Version 1)
Quarter: 2022Q4

REPORT INFORMATION
  Report Type: Spontaneous
  Country: US (occurrence: US)
  Receive Date: 20221018
  Receipt Date: 20221018
  Transmission Date: 20230113
  Serious: Yes (Other)
  Sender: FDA-Public Use
  Company Number: US-AUROBINDO-AUR-APL-2022-043362

PATIENT
  Age: 78 Year
  Sex: Female

DRUGS (5)
  1. CLARITHROMYCIN [Suspect]
     Active Substance: CLARITHROMYCIN
     Indication: Product used for unknown indication
     Dosage: 500 MILLIGRAM, DAILY
     Route: 048
  2. FAMOTIDINE [Suspect]
     Active Substance: FAMOTIDINE
     Indication: Product used for unknown indication
     Dosage: UNK
     Route: 065
  3. DOXYCYCLINE [Concomitant]
     Active Substance: DOXYCYCLINE
     Indication: Product used for unknown indication
     Dosage: 100 MILLIGRAM, TWO TIMES A DAY
     Route: 048
  4. NIACINAMIDE [Concomitant]
     Active Substance: NIACINAMIDE
     Indication: Mucous membrane pemphigoid
     Dosage: 500 MILLIGRAM, TWO TIMES A DAY
     Route: 065
  5. NIACINAMIDE [Concomitant]
     Active Substance: NIACINAMIDE
     Dosage: 500 MILLIGRAM, ONCE A DAY
     Route: 065

REACTIONS (2)
  - Mucous membrane pemphigoid [Unknown]
  - Drug ineffective [Unknown]

NARRATIVE: CASE EVENT DATE: 20220101
